FAERS Safety Report 10748134 (Version 1)
Quarter: 2015Q1

REPORT INFORMATION
  Report Type: Spontaneous
  Country: DE (occurrence: None)
  Receive Date: 20150127
  Receipt Date: 20150127
  Transmission Date: 20150721
  Serious: Yes (Disabling)
  Sender: FDA-Public Use
  Company Number: SP08652

PATIENT
  Sex: Female

DRUGS (1)
  1. MOVIPREP [Suspect]
     Active Substance: ASCORBIC ACID\POLYETHYLENE GLYCOL 3350\POTASSIUM CHLORIDE\SODIUM ASCORBATE\SODIUM CHLORIDE\SODIUM SULFATE
     Indication: BOWEL PREPARATION
     Dosage: (3 LIT), ORAL
     Route: 048
     Dates: start: 201210, end: 201210

REACTIONS (13)
  - Chills [None]
  - Rash pustular [None]
  - Alopecia [None]
  - Nail disorder [None]
  - Sleep disorder [None]
  - Joint swelling [None]
  - Eye inflammation [None]
  - Impaired driving ability [None]
  - Thermal burn [None]
  - Musculoskeletal disorder [None]
  - Myalgia [None]
  - Peripheral swelling [None]
  - Rash [None]
